FAERS Safety Report 14558560 (Version 2)
Quarter: 2018Q1

REPORT INFORMATION
  Report Type: Report from Study
  Country: US (occurrence: US)
  Receive Date: 20180221
  Receipt Date: 20180222
  Transmission Date: 20180509
  Serious: Yes (Hospitalization, Other)
  Sender: FDA-Public Use
  Company Number: US-ASTRAZENECA-2018SE08922

PATIENT
  Age: 31697 Day
  Sex: Female
  Weight: 90.3 kg

DRUGS (15)
  1. DAILY MULTIVITAMIN [Concomitant]
     Active Substance: VITAMINS
  2. VITAMIN D [Concomitant]
     Active Substance: CHOLECALCIFEROL
     Dosage: 400 UNITS EVERY 7 DAYS
  3. ASPIRIN. [Concomitant]
     Active Substance: ASPIRIN
     Dosage: 325MG TWICE DAILY
  4. LYNPARZA [Suspect]
     Active Substance: OLAPARIB
     Indication: NON-SMALL CELL LUNG CANCER
     Route: 048
     Dates: start: 20170925
  5. LYNPARZA [Suspect]
     Active Substance: OLAPARIB
     Indication: NON-SMALL CELL LUNG CANCER
     Route: 048
     Dates: start: 20171010, end: 20180103
  6. XARELTO [Concomitant]
     Active Substance: RIVAROXABAN
     Indication: PULMONARY EMBOLISM
     Dates: start: 201712
  7. ZINC ACETATE [Concomitant]
     Active Substance: ZINC ACETATE
     Dosage: 25MG EVERY DAY
  8. METOPROLOL SUCCINATE. [Suspect]
     Active Substance: METOPROLOL SUCCINATE
     Route: 048
  9. OMEPRAZOLE. [Suspect]
     Active Substance: OMEPRAZOLE
     Route: 048
  10. CRESTOR [Suspect]
     Active Substance: ROSUVASTATIN CALCIUM
     Route: 048
  11. FISH OIL [Concomitant]
     Active Substance: FISH OIL
     Dosage: 1000MG DAILY
  12. NITROGLYCERIN. [Concomitant]
     Active Substance: NITROGLYCERIN
     Dosage: 0.3MG SUBLINGUAL AS DIRECTED
  13. VITAMIN B12 [Concomitant]
     Active Substance: CYANOCOBALAMIN
     Dosage: 500MCG DAILY
  14. AMITRIPTYLINE [Concomitant]
     Active Substance: AMITRIPTYLINE
  15. BENICAR [Concomitant]
     Active Substance: OLMESARTAN MEDOXOMIL
     Dosage: 20MG DAILY

REACTIONS (11)
  - Haemoptysis [Recovered/Resolved]
  - Dizziness postural [Unknown]
  - Melaena [Unknown]
  - Gastritis [Unknown]
  - Fatigue [Unknown]
  - Chronic respiratory failure [Unknown]
  - Off label use [Unknown]
  - Anaemia [Unknown]
  - Pulmonary embolism [Unknown]
  - Product use in unapproved indication [Unknown]
  - Nausea [Unknown]

NARRATIVE: CASE EVENT DATE: 20170220
